FAERS Safety Report 7997765-9 (Version None)
Quarter: 2011Q4

REPORT INFORMATION
  Report Type: 
  Country: None (occurrence: None)
  Receive Date: 20111221
  Receipt Date: 20111206
  Transmission Date: 20120403
  Serious: Yes (Other)
  Sender: FDA-Public Use
  Company Number: CA-BRISTOL-MYERS SQUIBB COMPANY-16305005

PATIENT
  Weight: 3 kg

DRUGS (1)
  1. BUSPAR [Suspect]
     Dosage: 1 DF= 1 1/2 TABS OF BUSPAR 10 MG TABS.
     Route: 064
     Dates: start: 20100515

REACTIONS (1)
  - NEONATAL ASPIRATION [None]
